FAERS Safety Report 4940900-7 (Version None)
Quarter: 2006Q1

REPORT INFORMATION
  Report Type: 
  Country: None (occurrence: None)
  Receive Date: 20060307
  Receipt Date: 20060306
  Transmission Date: 20060701
  Serious: Yes (Hospitalization)
  Sender: FDA-Public Use
  Company Number: 218123

PATIENT
  Age: 54 Year
  Sex: Male

DRUGS (18)
  1. RITUXAN [Suspect]
     Indication: NON-HODGKIN'S LYMPHOMA
     Dosage: 600 MG INTRAVENOUS
     Route: 042
     Dates: start: 20011017
  2. RITUXAN [Suspect]
     Indication: NON-HODGKIN'S LYMPHOMA
     Dosage: 600 MG INTRAVENOUS
     Route: 042
     Dates: start: 20011024
  3. RITUXAN [Suspect]
     Indication: NON-HODGKIN'S LYMPHOMA
     Dosage: 600 MG INTRAVENOUS
     Route: 042
     Dates: start: 20011031
  4. RITUXAN [Suspect]
     Indication: NON-HODGKIN'S LYMPHOMA
     Dosage: 600 MG INTRAVENOUS
     Route: 042
     Dates: start: 20011107
  5. CYTARABINE [Concomitant]
  6. CISPLATIN [Concomitant]
  7. IBUPROFEN [Concomitant]
  8. DIPHENHYDRAMINE HCL [Concomitant]
  9. LAMIVUDINE [Concomitant]
  10. GLYCYRON #2 (CALICUM CARBONATE, GLYCINE, LICORICE, METHIONINE) [Concomitant]
  11. URSODESOXYCHOLIC ACID(URSODEOXYCHOLIC ACID) [Concomitant]
  12. RIFAMIPICIN (RIFAMPIN) [Concomitant]
  13. SULFAMETHOXAZOLE + TRIMETHOPRIM [Concomitant]
  14. FLUCONAZOLE [Concomitant]
  15. CIMETIDINE [Concomitant]
  16. PREDNISOLONE [Concomitant]
  17. LENOGRASTIM (LENOGRASTIM) [Concomitant]
  18. DEXAMETHASONE SODIUM PHOSPHATE [Concomitant]

REACTIONS (6)
  - BLOOD LACTATE DEHYDROGENASE INCREASED [None]
  - BLOOD POTASSIUM DECREASED [None]
  - HYPERCALCAEMIA [None]
  - NEUTROPHIL COUNT DECREASED [None]
  - PLATELET COUNT DECREASED [None]
  - WHITE BLOOD CELL COUNT DECREASED [None]
